FAERS Safety Report 10442559 (Version 1)
Quarter: 2014Q3

REPORT INFORMATION
  Report Type: Spontaneous
  Country: US (occurrence: US)
  Receive Date: 20140909
  Receipt Date: 20140909
  Transmission Date: 20150326
  Serious: No
  Sender: FDA-Public Use
  Company Number: US-MYLAN-2014M1001017

PATIENT
  Age: 53 Year
  Sex: Female

DRUGS (3)
  1. ZOLMIPTRIPTAN [Suspect]
     Active Substance: ZOLMITRIPTAN
     Dosage: 1.25 MG, PRN
     Route: 048
     Dates: start: 201407
  2. ZOLMIPTRIPTAN [Suspect]
     Active Substance: ZOLMITRIPTAN
     Indication: MIGRAINE
     Dosage: 5 MG, PRN
     Route: 048
     Dates: start: 201404, end: 201407
  3. ATIVAN [Concomitant]
     Active Substance: LORAZEPAM
     Dosage: UNK

REACTIONS (5)
  - Chest discomfort [Recovered/Resolved]
  - Tremor [Recovered/Resolved]
  - Incorrect dose administered [Not Recovered/Not Resolved]
  - Drug ineffective [Recovered/Resolved]
  - Migraine [Recovered/Resolved]

NARRATIVE: CASE EVENT DATE: 201407
